FAERS Safety Report 8504367-4 (Version None)
Quarter: 2012Q3

REPORT INFORMATION
  Report Type: 
  Country: None (occurrence: None)
  Receive Date: 20120711
  Receipt Date: 20120626
  Transmission Date: 20120928
  Serious: Yes (Other)
  Sender: FDA-Public Use
  Company Number: CHPA2012US014359

PATIENT
  Sex: Female

DRUGS (1)
  1. EXCEDRIN EXTRA STRENGTH TABLETS [Suspect]
     Indication: HEADACHE
     Dosage: 2 DF AT A TIME, UP TO 4-6 QD
     Route: 048
     Dates: end: 20120601

REACTIONS (4)
  - ARTHRITIS [None]
  - BREAST CANCER [None]
  - GOUT [None]
  - INCORRECT DRUG ADMINISTRATION DURATION [None]
